FAERS Safety Report 23688669 (Version 1)
Quarter: 2024Q1

REPORT INFORMATION
  Report Type: Spontaneous
  Country: SE (occurrence: None)
  Receive Date: 20240329
  Receipt Date: 20240329
  Transmission Date: 20240410
  Serious: Yes (Life-Threatening)
  Sender: FDA-Public Use
  Company Number: 2024A071952

PATIENT
  Age: 75 Year
  Sex: Female

DRUGS (3)
  1. TICAGRELOR [Interacting]
     Active Substance: TICAGRELOR
     Indication: Cerebrovascular accident
     Dosage: 1+1
     Route: 048
     Dates: start: 20231011, end: 20240101
  2. ROSUVASTATIN [Interacting]
     Active Substance: ROSUVASTATIN
     Dosage: 1 TABLET DAILY
     Dates: start: 201805, end: 20231012
  3. ROSUVASTATIN [Interacting]
     Active Substance: ROSUVASTATIN
     Dosage: 1 TABLET DAILY
     Dates: start: 20231013, end: 20240114

REACTIONS (4)
  - Drug interaction [Not Recovered/Not Resolved]
  - Renal failure [Not Recovered/Not Resolved]
  - Rhabdomyolysis [Not Recovered/Not Resolved]
  - Myositis [Not Recovered/Not Resolved]

NARRATIVE: CASE EVENT DATE: 20240114
